FAERS Safety Report 25514796 (Version 5)
Quarter: 2025Q3

REPORT INFORMATION
  Report Type: Report from Study
  Country: US (occurrence: US)
  Receive Date: 20250703
  Receipt Date: 20250828
  Transmission Date: 20251020
  Serious: Yes (Hospitalization)
  Sender: MALLINCKRODT
  Company Number: US-MALLINCKRODT-MNK202503808

PATIENT
  Age: 34 Year
  Sex: Male

DRUGS (1)
  1. CORTICOTROPIN [Suspect]
     Active Substance: CORTICOTROPIN
     Indication: Ulcerative keratitis
     Dates: start: 20250616

REACTIONS (6)
  - Pericardial effusion [Recovering/Resolving]
  - Muscle twitching [Unknown]
  - Muscle spasms [Unknown]
  - Feeling cold [Recovering/Resolving]
  - Nausea [Recovering/Resolving]
  - Insomnia [Unknown]

NARRATIVE: CASE EVENT DATE: 20250101
